FAERS Safety Report 19152959 (Version 2)
Quarter: 2021Q4

REPORT INFORMATION
  Report Type: Other
  Country: JP (occurrence: JP)
  Receive Date: 20210419
  Receipt Date: 20211011
  Transmission Date: 20220303
  Serious: Yes (Other)
  Sender: FDA-Public Use
  Company Number: JP-ROCHE-2808277

PATIENT

DRUGS (3)
  1. ATEZOLIZUMAB [Suspect]
     Active Substance: ATEZOLIZUMAB
     Indication: Non-small cell lung cancer
     Dosage: 1,200 MG/DAY EVERY 3 WEEKS
     Route: 042
  2. NIVOLUMAB [Suspect]
     Active Substance: NIVOLUMAB
     Indication: Non-small cell lung cancer
     Dosage: INTRAVENOUSLY AT 3 MG/KG OR 240 MG/DAY
     Route: 042
  3. PEMBROLIZUMAB [Suspect]
     Active Substance: PEMBROLIZUMAB
     Indication: Non-small cell lung cancer
     Dosage: 200 MG/DAY EVERY 3 WEEKS
     Route: 042

REACTIONS (14)
  - Interstitial lung disease [Unknown]
  - Adrenal insufficiency [Unknown]
  - Renal impairment [Unknown]
  - Hypothyroidism [Unknown]
  - Hepatic function abnormal [Unknown]
  - Skin disorder [Unknown]
  - Pyrexia [Unknown]
  - Colitis [Unknown]
  - Nervous system disorder [Unknown]
  - Arthralgia [Unknown]
  - Thyroid disorder [Unknown]
  - Rash [Unknown]
  - Diarrhoea [Unknown]
  - Stomatitis [Unknown]
